FAERS Safety Report 25245760 (Version 1)
Quarter: 2025Q2

REPORT INFORMATION
  Report Type: Spontaneous
  Country: US (occurrence: US)
  Receive Date: 20250428
  Receipt Date: 20250428
  Transmission Date: 20250716
  Serious: Yes (Hospitalization, Other)
  Sender: EPIC PHARM
  Company Number: US-EPICPHARMA-US-2025EPCLIT00485

PATIENT
  Age: 75 Year
  Sex: Male

DRUGS (1)
  1. METFORMIN HYDROCHLORIDE [Suspect]
     Active Substance: METFORMIN HYDROCHLORIDE
     Indication: Type 2 diabetes mellitus
     Route: 065

REACTIONS (7)
  - Acute kidney injury [Recovering/Resolving]
  - Distributive shock [Recovered/Resolved]
  - Toxicity to various agents [Unknown]
  - Mental status changes [Unknown]
  - Leukocytosis [Unknown]
  - Metabolic acidosis [Unknown]
  - Lactic acidosis [Unknown]
